FAERS Safety Report 20371843 (Version 2)
Quarter: 2022Q1

REPORT INFORMATION
  Report Type: Report from Study
  Country: CN (occurrence: CN)
  Receive Date: 20220124
  Receipt Date: 20220207
  Transmission Date: 20220423
  Serious: No
  Sender: FDA-Public Use
  Company Number: CN-TAKEDA-2022TUS004401

PATIENT
  Age: 69 Year
  Sex: Female
  Weight: 60 kg

DRUGS (7)
  1. IXAZOMIB [Suspect]
     Active Substance: IXAZOMIB
     Indication: Plasma cell myeloma
     Dosage: 4 MILLIGRAM
     Route: 048
     Dates: start: 20210421
  2. HYDROTALCITE [Concomitant]
     Active Substance: HYDROTALCITE
     Indication: Prophylaxis
     Dosage: 0.5 GRAM, TID
     Route: 048
     Dates: start: 20210329
  3. LEUCOGEN [Concomitant]
     Active Substance: LEUCOGEN
     Indication: Thrombocytopenia
     Dosage: 20 MILLIGRAM, TID
     Route: 048
     Dates: start: 20210329
  4. THALIDOMIDE [Concomitant]
     Active Substance: THALIDOMIDE
     Indication: Plasma cell myeloma
     Dosage: 100 MILLIGRAM, QD
     Route: 048
     Dates: start: 20210329
  5. DEXAMETHASONE ACETATE [Concomitant]
     Active Substance: DEXAMETHASONE ACETATE
     Indication: Plasma cell myeloma
     Dosage: 15 MILLIGRAM
     Route: 048
     Dates: start: 20210329
  6. FAMOTIDINE [Concomitant]
     Active Substance: FAMOTIDINE
     Indication: Plasma cell myeloma
     Dosage: 20 MILLIGRAM, BID
     Route: 048
     Dates: start: 20210329
  7. Demethylcantharidin [Concomitant]
     Indication: Leukopenia
     Dosage: 10 MILLIGRAM, TID
     Route: 048
     Dates: start: 20210426

REACTIONS (4)
  - Chest discomfort [Not Recovered/Not Resolved]
  - Asthenia [Not Recovered/Not Resolved]
  - Nausea [Not Recovered/Not Resolved]
  - Vomiting [Not Recovered/Not Resolved]

NARRATIVE: CASE EVENT DATE: 20210501
